FAERS Safety Report 17060200 (Version 1)
Quarter: 2019Q4

REPORT INFORMATION
  Report Type: Spontaneous
  Country: FR (occurrence: FR)
  Receive Date: 20191121
  Receipt Date: 20191121
  Transmission Date: 20200122
  Serious: Yes (Other)
  Sender: FDA-Public Use
  Company Number: FR-BAYER-2019-208106

PATIENT
  Age: 58 Year
  Sex: Female

DRUGS (3)
  1. REGORAFENIB. [Suspect]
     Active Substance: REGORAFENIB
     Indication: RECTOSIGMOID CANCER
     Dosage: 160 MG
  2. REGORAFENIB. [Suspect]
     Active Substance: REGORAFENIB
     Indication: RECTOSIGMOID CANCER
     Dosage: 80 MG/DAY, 3 WEEKS/4
     Dates: start: 201810
  3. REGORAFENIB. [Suspect]
     Active Substance: REGORAFENIB
     Indication: RECTOSIGMOID CANCER
     Dosage: 120 MG

REACTIONS (7)
  - Drug intolerance [None]
  - Decreased appetite [None]
  - Weight decreased [Recovering/Resolving]
  - Palmar-plantar erythrodysaesthesia syndrome [None]
  - Rectosigmoid cancer [None]
  - Asthenia [Recovering/Resolving]
  - Diarrhoea [Recovered/Resolved]

NARRATIVE: CASE EVENT DATE: 201905
